FAERS Safety Report 4679690-4 (Version None)
Quarter: 2005Q2

REPORT INFORMATION
  Report Type: 
  Country: None (occurrence: None)
  Receive Date: 20050531
  Receipt Date: 20050412
  Transmission Date: 20051028
  Serious: Yes (Hospitalization)
  Sender: FDA-Public Use
  Company Number: 2005060540

PATIENT
  Age: 42 Year
  Sex: Female
  Weight: 52.1637 kg

DRUGS (7)
  1. BEXTRA [Suspect]
     Indication: BACK PAIN
     Dosage: 20 MG (10 MG, BID INTERVAL:  EVERY DAY),ORAL
     Route: 048
     Dates: start: 20041202, end: 20050316
  2. BEXTRA [Suspect]
     Indication: SCIATICA
     Dosage: 20 MG (10 MG, BID INTERVAL:  EVERY DAY),ORAL
     Route: 048
     Dates: start: 20041202, end: 20050316
  3. NEURONTIN [Suspect]
     Indication: NEURALGIA
     Dosage: 900 MG (300 MG, TID INTERVAL:  EVERY DAY), ORAL
     Route: 048
     Dates: start: 20040101, end: 20040101
  4. XANAX [Concomitant]
  5. CELEXA [Concomitant]
  6. PREVACID [Concomitant]
  7. FLEXERIL [Concomitant]

REACTIONS (6)
  - ABASIA [None]
  - CEREBROVASCULAR ACCIDENT [None]
  - CONFUSIONAL STATE [None]
  - DRUG INEFFECTIVE [None]
  - PALPITATIONS [None]
  - TUBAL LIGATION [None]
